FAERS Safety Report 15952441 (Version 1)
Quarter: 2019Q1

REPORT INFORMATION
  Report Type: Spontaneous
  Country: US (occurrence: US)
  Receive Date: 20190211
  Receipt Date: 20190211
  Transmission Date: 20190417
  Serious: Yes (Other)
  Sender: FDA-Public Use
  Company Number: US-AMREGENT-20190201

PATIENT
  Sex: Female

DRUGS (1)
  1. INJECTAFER [Suspect]
     Active Substance: FERRIC CARBOXYMALTOSE
     Dosage: FIRST DOSE; UNKNOWN
     Route: 065
     Dates: start: 201801, end: 201801

REACTIONS (1)
  - Serum ferritin increased [Unknown]

NARRATIVE: CASE EVENT DATE: 201804
